FAERS Safety Report 4530035-X (Version None)
Quarter: 2004Q4

REPORT INFORMATION
  Report Type: 
  Country: None (occurrence: None)
  Receive Date: 20041215
  Receipt Date: 20041215
  Transmission Date: 20050328
  Serious: Yes (Life-Threatening, Disabling)
  Sender: FDA-Public Use
  Company Number: None

PATIENT
  Age: 30 Year
  Sex: Male
  Weight: 61.2356 kg

DRUGS (1)
  1. MEFLOQUINE [Suspect]
     Indication: MALARIA PROPHYLAXIS
     Dosage: 250MG   PER WEEK   ORAL
     Route: 048
     Dates: start: 20040831, end: 20041213

REACTIONS (8)
  - ANXIETY [None]
  - DELUSION [None]
  - DEPRESSION [None]
  - HALLUCINATION [None]
  - INSOMNIA [None]
  - NIGHT SWEATS [None]
  - PANIC ATTACK [None]
  - SUICIDAL IDEATION [None]
